FAERS Safety Report 4609338-6 (Version None)
Quarter: 2005Q1

REPORT INFORMATION
  Report Type: 
  Country: None (occurrence: None)
  Receive Date: 20050314
  Receipt Date: 20050301
  Transmission Date: 20050727
  Serious: Yes (Hospitalization)
  Sender: FDA-Public Use
  Company Number: 2005042063

PATIENT
  Age: 5 Month
  Sex: Male

DRUGS (2)
  1. VIRACEPT [Suspect]
     Indication: HIV INFECTION
     Dosage: ORAL
     Route: 048
  2. LAMIVUDINE AND ZIDOVUDINE [Concomitant]
     Indication: HIV INFECTION
     Dosage: ORAL
     Route: 048

REACTIONS (4)
  - CORNEAL OPACITY [None]
  - DRUG EXPOSURE DURING PREGNANCY [None]
  - GLAUCOMA [None]
  - PHOTOPHOBIA [None]
